APPROVED DRUG PRODUCT: DALFAMPRIDINE
Active Ingredient: DALFAMPRIDINE
Strength: 10MG
Dosage Form/Route: TABLET, EXTENDED RELEASE;ORAL
Application: A206858 | Product #001
Applicant: RISING PHARMA HOLDING INC
Approved: Jul 6, 2020 | RLD: No | RS: No | Type: DISCN